FAERS Safety Report 10049645 (Version 5)
Quarter: 2014Q2

REPORT INFORMATION
  Report Type: Spontaneous
  Country: PT (occurrence: PT)
  Receive Date: 20140401
  Receipt Date: 20140526
  Transmission Date: 20141212
  Serious: Yes (Other)
  Sender: FDA-Public Use
  Company Number: PHHY2014PT038632

PATIENT
  Age: 75 Year
  Sex: Female

DRUGS (8)
  1. GLIVEC [Suspect]
     Indication: GASTROINTESTINAL STROMAL TUMOUR
     Dosage: 400 MG
     Dates: end: 20140206
  2. GLIVEC [Suspect]
     Dosage: 400 MG
     Dates: start: 20140306, end: 20140327
  3. GLIVEC [Suspect]
     Dosage: 300 MG
     Dates: start: 201404
  4. BISOPROLOL [Concomitant]
     Dosage: UNK UKN, UNK
  5. OMEPRAZOLE [Concomitant]
     Dosage: UNK UKN, UNK
  6. TRIFLUSAL [Concomitant]
     Dosage: UNK UKN, UNK
  7. ALPRAZOLAM [Concomitant]
     Dosage: UNK UKN, UNK
  8. TRAZODONE [Concomitant]
     Dosage: UNK UKN, UNK

REACTIONS (6)
  - Psychomotor retardation [Recovered/Resolved]
  - Bradycardia [Recovered/Resolved]
  - Hypothyroidism [Recovered/Resolved]
  - Anaemia [Recovered/Resolved]
  - Skin exfoliation [Recovering/Resolving]
  - Erythema [Recovered/Resolved]
